FAERS Safety Report 7769304-9 (Version None)
Quarter: 2011Q3

REPORT INFORMATION
  Report Type: 
  Country: None (occurrence: None)
  Receive Date: 20110922
  Receipt Date: 20110913
  Transmission Date: 20111222
  Serious: Yes (Hospitalization)
  Sender: FDA-Public Use
  Company Number: US-B.I. PHARMACEUTICALS,INC./RIDGEFIELD-2011-BP-22160BP

PATIENT
  Sex: Male

DRUGS (3)
  1. UNKNOWN HYPERTENSION MEDICATION [Concomitant]
     Indication: HYPERTENSION
     Route: 065
  2. TRADJENTA [Suspect]
     Indication: TYPE 2 DIABETES MELLITUS
     Dates: start: 20110701, end: 20110911
  3. CREON [Concomitant]
     Indication: PANCREATITIS
     Route: 048
     Dates: start: 20100101

REACTIONS (1)
  - PANCREATITIS [None]
